FAERS Safety Report 7445121-4 (Version None)
Quarter: 2011Q2

REPORT INFORMATION
  Report Type: 
  Country: None (occurrence: None)
  Receive Date: 20110429
  Receipt Date: 20110425
  Transmission Date: 20111010
  Serious: Yes (Hospitalization)
  Sender: FDA-Public Use
  Company Number: US-AMGEN-USASP2011021400

PATIENT
  Age: 91 Year
  Sex: Female

DRUGS (2)
  1. VECTIBIX [Suspect]
     Indication: COLON CANCER
     Dosage: 425 MG, Q3WK
     Dates: start: 20110217
  2. ARANESP [Suspect]
     Indication: ANAEMIA
     Dates: start: 20110330

REACTIONS (2)
  - ANAEMIA [None]
  - TRANSIENT ISCHAEMIC ATTACK [None]
